FAERS Safety Report 20647555 (Version 1)
Quarter: 2022Q1

REPORT INFORMATION
  Report Type: Spontaneous
  Country: US (occurrence: US)
  Receive Date: 20220329
  Receipt Date: 20220329
  Transmission Date: 20220423
  Serious: Yes (Hospitalization)
  Sender: FDA-Public Use
  Company Number: US-MYLANLABS-2022M1022792

PATIENT
  Age: 36 Year
  Sex: Male

DRUGS (14)
  1. METHOTREXATE [Suspect]
     Active Substance: METHOTREXATE
     Indication: Granulomatosis with polyangiitis
     Dosage: UNK
     Route: 065
  2. PREDNISONE [Suspect]
     Active Substance: PREDNISONE
     Indication: Granulomatosis with polyangiitis
     Dosage: QD ,7.5-20 MG OF PREDNISONE PER DAY AT THE TIME OF HOSPITALISATION
     Route: 065
  3. AZITHROMYCIN [Suspect]
     Active Substance: AZITHROMYCIN
     Indication: Babesiosis
     Dosage: 500 MILLIGRAM, TOTAL
     Route: 042
     Dates: start: 20190109, end: 20190109
  4. AZITHROMYCIN [Suspect]
     Active Substance: AZITHROMYCIN
     Indication: Babesiosis
     Dosage: 500 MILLIGRAM, QD
     Route: 048
     Dates: start: 201901
  5. AZITHROMYCIN [Suspect]
     Active Substance: AZITHROMYCIN
     Dosage: 250 MILLIGRAM, QD
     Route: 048
     Dates: start: 201901
  6. AZITHROMYCIN [Suspect]
     Active Substance: AZITHROMYCIN
     Dosage: 500 MILLIGRAM, QD
     Route: 048
  7. CLINDAMYCIN [Suspect]
     Active Substance: CLINDAMYCIN
     Indication: Babesiosis
     Dosage: 300 MILLIGRAM TID (300MG THREE TIMES A DAY)
     Route: 048
     Dates: start: 20190917
  8. CLINDAMYCIN [Suspect]
     Active Substance: CLINDAMYCIN
     Dosage: 450 MILLIGRAM  TID (450MG THREE TIMES A DAY)
     Route: 048
     Dates: start: 20200129
  9. CYCLOPHOSPHAMIDE [Suspect]
     Active Substance: CYCLOPHOSPHAMIDE
     Indication: Granulomatosis with polyangiitis
     Dosage: UNK
     Route: 065
  10. RITUXIMAB [Suspect]
     Active Substance: RITUXIMAB
     Indication: Granulomatosis with polyangiitis
     Dosage: UNK (RECEIVED TWO DOSES OF RITUXIMAB; LAST OF WHICH WAS ADMINISTERED IN JAN 2017)
     Route: 065
     Dates: end: 201701
  11. ATOVAQUONE [Suspect]
     Active Substance: ATOVAQUONE
     Indication: Babesiosis
     Dosage: 750 MILLIGRAM, QD (LIQUID SUSPENSION)
     Route: 048
     Dates: start: 20190109
  12. MALARONE [Suspect]
     Active Substance: ATOVAQUONE\PROGUANIL HYDROCHLORIDE
     Indication: Babesiosis
     Dosage: 4 DOSAGE FORM, QD
     Route: 048
     Dates: start: 20200129
  13. TAFENOQUINE [Suspect]
     Active Substance: TAFENOQUINE
     Indication: Babesiosis
     Dosage: 200 MILLIGRAM, QD
     Route: 048
     Dates: start: 20200310
  14. TAFENOQUINE [Suspect]
     Active Substance: TAFENOQUINE
     Dosage: 200 MILLIGRAM, QW
     Route: 048
     Dates: start: 202003

REACTIONS (5)
  - Babesiosis [Recovered/Resolved]
  - Disease recurrence [Recovered/Resolved]
  - Nausea [Unknown]
  - Diarrhoea [Unknown]
  - Off label use [Unknown]

NARRATIVE: CASE EVENT DATE: 20190329
